FAERS Safety Report 7606263-3 (Version None)
Quarter: 2011Q3

REPORT INFORMATION
  Report Type: 
  Country: None (occurrence: None)
  Receive Date: 20110713
  Receipt Date: 20110701
  Transmission Date: 20111222
  Serious: Yes (Hospitalization, Other)
  Sender: FDA-Public Use
  Company Number: US-BAYER-201028029NA

PATIENT
  Age: 35 Year
  Sex: Female
  Weight: 74.83 kg

DRUGS (15)
  1. YASMIN [Suspect]
     Indication: CONTRACEPTION
     Dosage: UNK UNK, QD
     Route: 048
     Dates: start: 20050501, end: 20080901
  2. LAMICTAL [Concomitant]
     Dosage: 200 MG, QD
     Dates: start: 20051001
  3. NERVOUS SYSTEM [Concomitant]
     Indication: ATTENTION DEFICIT/HYPERACTIVITY DISORDER
     Dosage: 50 MG, QD
     Route: 048
     Dates: start: 20080506
  4. VALTREX [Concomitant]
     Dosage: UNK UNK, BID
  5. LAMICTAL [Concomitant]
     Indication: BIPOLAR DISORDER
     Dosage: 150 MG, QD
     Route: 048
     Dates: start: 20060308
  6. ETHINYLESTRAD W/FERROUS FUM/NORETHISTER ACET [Concomitant]
     Indication: CONTRACEPTION
     Dosage: UNK UNK, QD
     Route: 048
     Dates: start: 20081002
  7. MULTI-VITAMIN [Concomitant]
     Indication: SUPPLEMENTATION THERAPY
     Dosage: UNK UNK, QD
  8. IBUPROFEN [IBUPROFEN SODIUM] [Concomitant]
     Indication: HEADACHE
     Dosage: 200 MG, PRN
  9. GEODON [Concomitant]
     Indication: BIPOLAR DISORDER
     Dosage: 80 MG, BID
     Route: 048
     Dates: start: 20050622
  10. NEXIUM [Concomitant]
     Dosage: 40 MG, QD
     Route: 048
     Dates: start: 20081216
  11. NUVARING [Concomitant]
     Indication: CONTRACEPTION
     Dosage: UNK UNK, Q3WK
     Route: 067
     Dates: start: 20090316
  12. GEODON [Concomitant]
     Dosage: 80 MG, BID
     Dates: start: 20050801
  13. FEMCON FE [Concomitant]
     Indication: CONTRACEPTION
     Dosage: UNK UNK, QD
     Dates: start: 20081030
  14. CENTRALLY ACTING SYMPATHOMIMETICS [Concomitant]
     Indication: ATTENTION DEFICIT/HYPERACTIVITY DISORDER
     Dosage: 60 MG, QD
     Dates: start: 20081001
  15. LYSINE [Concomitant]

REACTIONS (4)
  - GALLBLADDER DISORDER [None]
  - CHOLECYSTITIS CHRONIC [None]
  - GALLBLADDER CHOLESTEROLOSIS [None]
  - ABDOMINAL PAIN [None]
